FAERS Safety Report 16409045 (Version 2)
Quarter: 2019Q2

REPORT INFORMATION
  Report Type: Spontaneous
  Country: ES (occurrence: ES)
  Receive Date: 20190610
  Receipt Date: 20190622
  Transmission Date: 20190711
  Serious: Yes (Hospitalization)
  Sender: FDA-Public Use
  Company Number: ES-ACCORD-131937

PATIENT
  Age: 79 Year
  Sex: Male

DRUGS (2)
  1. FUROSEMIDE. [Suspect]
     Active Substance: FUROSEMIDE
     Indication: CARDIAC FAILURE
     Dosage: (120 MG FROM 1-FEB-19 TO 22-MAR-19),2-1-0
     Route: 048
     Dates: start: 20151213, end: 20190131
  2. SPIRONOLACTONE. [Interacting]
     Active Substance: SPIRONOLACTONE
     Indication: CARDIAC FAILURE
     Route: 048
     Dates: start: 20171114, end: 20190322

REACTIONS (2)
  - Drug interaction [Unknown]
  - Acute kidney injury [Recovered/Resolved]

NARRATIVE: CASE EVENT DATE: 20190322
